FAERS Safety Report 8242267-8 (Version None)
Quarter: 2012Q1

REPORT INFORMATION
  Report Type: 
  Country: None (occurrence: None)
  Receive Date: 20120329
  Receipt Date: 20120326
  Transmission Date: 20120608
  Serious: No
  Sender: FDA-Public Use
  Company Number: US-PFIZER INC-2012078558

PATIENT
  Sex: Female

DRUGS (2)
  1. CHANTIX [Suspect]
     Indication: SMOKING CESSATION THERAPY
     Dosage: 0.50 MG, DAILY
     Dates: start: 20120101
  2. CHANTIX [Suspect]
     Dosage: 1 MG, 2X/DAY
     Dates: end: 20120301

REACTIONS (2)
  - SLEEP DISORDER [None]
  - NAUSEA [None]
